FAERS Safety Report 5280969-6 (Version None)
Quarter: 2007Q1

REPORT INFORMATION
  Report Type: 
  Country: None (occurrence: None)
  Receive Date: 20061229
  Receipt Date: 20060921
  Transmission Date: 20070707
  Serious: Yes (Other)
  Sender: FDA-Public Use
  Company Number: 2006UW18442

PATIENT
  Age: 71 Year
  Sex: Female
  Weight: 56.245 kg

DRUGS (5)
  1. CRESTOR [Suspect]
     Indication: BLOOD CHOLESTEROL INCREASED
     Dosage: 10 MG PO
     Route: 048
     Dates: start: 20060101, end: 20060701
  2. CALCIUM [Concomitant]
  3. ASPIRIN [Concomitant]
  4. TUMS [Concomitant]
  5. VITAMIN CAP [Concomitant]

REACTIONS (3)
  - ASTHENIA [None]
  - FATIGUE [None]
  - WEIGHT DECREASED [None]
